FAERS Safety Report 5844120-3 (Version None)
Quarter: 2008Q3

REPORT INFORMATION
  Report Type: 
  Country: None (occurrence: None)
  Receive Date: 20080813
  Receipt Date: 20080807
  Transmission Date: 20090109
  Serious: Yes (Death, Hospitalization, Other)
  Sender: FDA-Public Use
  Company Number: US-ALLERGAN-0806735US

PATIENT
  Sex: Female
  Weight: 81.633 kg

DRUGS (9)
  1. BOTOX [Suspect]
     Indication: JOINT CONTRACTURE
     Dosage: UNK, SINGLE
     Dates: start: 20040710, end: 20040710
  2. BOTOX [Suspect]
     Indication: MUSCLE SPASTICITY
     Dosage: UNK, SINGLE
     Dates: start: 20041227, end: 20041227
  3. BOTOX [Suspect]
     Dosage: UNK, SINGLE
     Dates: start: 20050414, end: 20050414
  4. BOTOX [Suspect]
     Dosage: UNK, SINGLE
     Dates: start: 20050731, end: 20050731
  5. BOTOX [Suspect]
     Dosage: UNK, SINGLE
     Dates: start: 20051127, end: 20051127
  6. BOTOX [Suspect]
     Dosage: UNK, SINGLE
  7. MYOBLOC [Suspect]
     Indication: JOINT CONTRACTURE
  8. VITAMIN B-12 [Concomitant]
     Indication: VITAMIN B12 DECREASED
     Dosage: UNK, Q MONTH
     Dates: start: 19850101
  9. PROCRIT [Concomitant]
     Indication: ANAEMIA
     Dates: start: 20060101

REACTIONS (2)
  - DYSPHAGIA [None]
  - PNEUMONIA ASPIRATION [None]
